FAERS Safety Report 24671536 (Version 1)
Quarter: 2024Q4

REPORT INFORMATION
  Report Type: Spontaneous
  Country: US (occurrence: US)
  Receive Date: 20241127
  Receipt Date: 20241127
  Transmission Date: 20250114
  Serious: No
  Sender: AKEBIA THERAPEUTICS
  Company Number: US-KERYX BIOPHARMACEUTICALS INC.-US-AKEB-24-000212

PATIENT

DRUGS (2)
  1. AURYXIA [Suspect]
     Active Substance: TETRAFERRIC TRICITRATE DECAHYDRATE
     Indication: Hyperphosphataemia
     Dosage: UNK
     Route: 065
  2. VENOFER [Concomitant]
     Active Substance: IRON SUCROSE
     Indication: Product used for unknown indication
     Dosage: UNK, OCCASIONALLY
     Route: 065

REACTIONS (2)
  - Transferrin saturation increased [Unknown]
  - Serum ferritin increased [Unknown]
